FAERS Safety Report 4877234-5 (Version None)
Quarter: 2006Q1

REPORT INFORMATION
  Report Type: 
  Country: None (occurrence: None)
  Receive Date: 20060111
  Receipt Date: 20060103
  Transmission Date: 20060701
  Serious: Yes (Other)
  Sender: FDA-Public Use
  Company Number: GB-JNJFOC-20060100326

PATIENT
  Sex: Male
  Weight: 104 kg

DRUGS (8)
  1. REMICADE [Suspect]
     Indication: RHEUMATOID ARTHRITIS
     Route: 042
  2. METHOTREXATE [Concomitant]
     Route: 065
  3. AMITRIPTYLINE HCL [Concomitant]
     Route: 065
  4. ATENOLOL [Concomitant]
     Route: 065
  5. FENTANYL [Concomitant]
     Route: 065
  6. FOLIC ACID [Concomitant]
     Route: 065
  7. LANSOPRAZOLE [Concomitant]
     Route: 065
  8. PIROXICAM [Concomitant]
     Route: 065

REACTIONS (1)
  - PENIS CARCINOMA [None]
